FAERS Safety Report 15202664 (Version 1)
Quarter: 2018Q3

REPORT INFORMATION
  Report Type: Spontaneous
  Country: FR (occurrence: FR)
  Receive Date: 20180726
  Receipt Date: 20180726
  Transmission Date: 20181010
  Serious: Yes (Hospitalization)
  Sender: FDA-Public Use
  Company Number: FR-AUROBINDO-AUR-APL-2018-037608

PATIENT
  Age: 91 Year
  Sex: Female
  Weight: 52 kg

DRUGS (2)
  1. PREDNISONE. [Suspect]
     Active Substance: PREDNISONE
     Indication: LUNG DISORDER
     Dosage: 20 MILLIGRAM, ONCE A DAY
     Route: 048
     Dates: start: 20180524
  2. LEVOFLOXACINE                      /01278901/ [Concomitant]
     Active Substance: LEVOFLOXACIN
     Indication: LUNG DISORDER
     Dosage: 500 MILLIGRAM, ONCE A DAY
     Route: 065
     Dates: start: 20180522, end: 20180528

REACTIONS (2)
  - Tendon rupture [Not Recovered/Not Resolved]
  - Pain in extremity [Not Recovered/Not Resolved]

NARRATIVE: CASE EVENT DATE: 20180526
